FAERS Safety Report 6151646-4 (Version None)
Quarter: 2009Q2

REPORT INFORMATION
  Report Type: 
  Country: None (occurrence: None)
  Receive Date: 20090410
  Receipt Date: 20090409
  Transmission Date: 20091009
  Serious: Yes (Other)
  Sender: FDA-Public Use
  Company Number: US-ROXANE LABORATORIES, INC.-2009-RO-00230RO

PATIENT
  Sex: Male
  Weight: 86 kg

DRUGS (5)
  1. HYDROMORPHONE HCL [Suspect]
     Indication: ABDOMINAL DISCOMFORT
     Dosage: 6MG
     Dates: start: 20070401
  2. HYDROMORPHONE HCL [Suspect]
     Dosage: 12MG
  3. DILAUDID [Suspect]
     Indication: MALAISE
     Dosage: 6MG
  4. DILAUDID [Suspect]
     Indication: ABDOMINAL DISCOMFORT
  5. FENTANYL [Concomitant]
     Route: 062

REACTIONS (6)
  - DRUG INEFFECTIVE [None]
  - GASTRIC CANCER [None]
  - HYPOAESTHESIA [None]
  - MUSCULOSKELETAL PAIN [None]
  - NECK PAIN [None]
  - THERAPEUTIC RESPONSE UNEXPECTED [None]
